FAERS Safety Report 12889291 (Version 1)
Quarter: 2016Q4

REPORT INFORMATION
  Report Type: Spontaneous
  Country: US (occurrence: US)
  Receive Date: 20161027
  Receipt Date: 20161027
  Transmission Date: 20170207
  Serious: Yes (Hospitalization)
  Sender: FDA-Public Use
  Company Number: US-B.I. PHARMACEUTICALS,INC./RIDGEFIELD-2016-BI-068934

PATIENT
  Age: 60 Year
  Sex: Female
  Weight: 54 kg

DRUGS (4)
  1. CARVEDILOL. [Concomitant]
     Active Substance: CARVEDILOL
     Indication: CARDIAC DISORDER
     Dosage: 1 TABLET DAILY;  FORM STRENGTH: 6.25MG; FORMULATION: TABLET
     Route: 048
     Dates: start: 20160811
  2. SPIRIVA [Suspect]
     Active Substance: TIOTROPIUM BROMIDE MONOHYDRATE
     Indication: CHRONIC OBSTRUCTIVE PULMONARY DISEASE
     Route: 048
     Dates: start: 201606
  3. FLONASE [Concomitant]
     Active Substance: FLUTICASONE PROPIONATE
     Indication: MULTIPLE ALLERGIES
     Dosage: 1 SQUIRT TO EACH NOSTRIL DAILY;  FORMULATION: NASAL SPRAY;
     Route: 050
     Dates: start: 2015
  4. RANITIDINE. [Concomitant]
     Active Substance: RANITIDINE
     Indication: DIVERTICULITIS
     Dosage: 1 TABLET TWICE A DAY;  FORM STRENGTH: 150MG; FORMULATION: TABLET
     Route: 048
     Dates: start: 2015

REACTIONS (12)
  - Pain in extremity [Recovered/Resolved]
  - Asthenia [Not Recovered/Not Resolved]
  - Anxiety [Not Recovered/Not Resolved]
  - Abdominal pain upper [Not Recovered/Not Resolved]
  - Diverticulitis [Not Recovered/Not Resolved]
  - Blood pressure increased [Recovered/Resolved]
  - Fear [Not Recovered/Not Resolved]
  - Eating disorder [Not Recovered/Not Resolved]
  - Weight decreased [Not Recovered/Not Resolved]
  - Peripheral artery occlusion [Recovered/Resolved]
  - Gait disturbance [Recovered/Resolved]
  - Dyspnoea [Recovered/Resolved]

NARRATIVE: CASE EVENT DATE: 201606
